FAERS Safety Report 8023767-2 (Version None)
Quarter: 2012Q1

REPORT INFORMATION
  Report Type: 
  Country: None (occurrence: None)
  Receive Date: 20120103
  Receipt Date: 20120103
  Transmission Date: 20120608
  Serious: No
  Sender: FDA-Public Use
  Company Number: None

PATIENT
  Age: 87 Year
  Sex: Male
  Weight: 70.5 kg

DRUGS (1)
  1. FLUNISOLIDE [Suspect]
     Indication: SINUSITIS
     Dosage: 2 PUFF(S) BID NASAL
     Route: 045
     Dates: start: 20110309, end: 20110915

REACTIONS (1)
  - BURNING SENSATION [None]
